FAERS Safety Report 4956698-2 (Version None)
Quarter: 2006Q1

REPORT INFORMATION
  Report Type: 
  Country: None (occurrence: None)
  Receive Date: 20060323
  Receipt Date: 20060309
  Transmission Date: 20060701
  Serious: Yes (Other)
  Sender: FDA-Public Use
  Company Number: IMP_2132_2006

PATIENT
  Age: 81 Year
  Sex: Female

DRUGS (4)
  1. OMEPRAZOLE [Suspect]
     Indication: REFLUX OESOPHAGITIS
     Dosage: 40 MG QDAY PO
     Route: 048
  2. MELOXICAM [Concomitant]
  3. PROCHLORPERAZINE MALEATE [Concomitant]
  4. DOCUSATE SODIUM [Concomitant]

REACTIONS (11)
  - ANOREXIA [None]
  - DERMATOMYOSITIS [None]
  - DRUG ERUPTION [None]
  - DYSSTASIA [None]
  - LETHARGY [None]
  - MALAISE [None]
  - OEDEMA PERIPHERAL [None]
  - PETECHIAE [None]
  - PHOTOSENSITIVITY REACTION [None]
  - PYREXIA [None]
  - VASCULITIS [None]
